FAERS Safety Report 8461537 (Version 2)
Quarter: 2012Q4

REPORT INFORMATION
  Report Type: 
  Country: US (occurrence: US)
  Receive Date: 20120315
  Receipt Date: 20121217
  Transmission Date: 20130627
  Serious: Yes (Other)
  Sender: FDA-Public Use
  Company Number: US-PFIZER INC-2012066777

PATIENT
  Age: 57 Year
  Sex: Female
  Weight: 68.03 kg

DRUGS (5)
  1. LYRICA [Suspect]
     Indication: FIBROMYALGIA
     Dosage: 50 mg, 1x/day
     Route: 048
     Dates: start: 2010
  2. LYRICA [Suspect]
     Dosage: 75 mg, 1x/day
     Route: 048
  3. LYRICA [Suspect]
     Dosage: 75 mg, 2x/day
     Route: 048
  4. RESTORIL [Concomitant]
     Dosage: 30 mg, 1x/day
  5. MOTRIN [Concomitant]
     Dosage: 600 mg

REACTIONS (3)
  - Spinal osteoarthritis [Not Recovered/Not Resolved]
  - Pain [Not Recovered/Not Resolved]
  - Drug ineffective [Unknown]
